FAERS Safety Report 4713315-4 (Version None)
Quarter: 2005Q3

REPORT INFORMATION
  Report Type: 
  Country: None (occurrence: None)
  Receive Date: 20050713
  Receipt Date: 20020919
  Transmission Date: 20060218
  Serious: Yes (Death, Hospitalization)
  Sender: FDA-Public Use
  Company Number: B0280418A

PATIENT
  Age: 32 Year
  Sex: Male

DRUGS (5)
  1. ZIDOVUDINE [Suspect]
     Indication: HIV INFECTION
     Dates: start: 20020719
  2. LAMIVUDINE [Suspect]
     Indication: HIV INFECTION
     Dates: start: 20020719
  3. SAQUINAVIR [Suspect]
     Dates: start: 20020719
  4. RITONAVIR [Suspect]
     Indication: HIV INFECTION
  5. COTRIM [Concomitant]

REACTIONS (4)
  - ANAEMIA [None]
  - DEATH [None]
  - GENERAL PHYSICAL CONDITION [None]
  - VOMITING [None]
